FAERS Safety Report 4909501-0 (Version None)
Quarter: 2006Q1

REPORT INFORMATION
  Report Type: 
  Country: None (occurrence: None)
  Receive Date: 20060208
  Receipt Date: 20060208
  Transmission Date: 20060701
  Serious: Yes (Hospitalization)
  Sender: FDA-Public Use
  Company Number: None

PATIENT
  Sex: Male
  Weight: 48.0813 kg

DRUGS (10)
  1. ASPIRIN [Suspect]
     Indication: PROPHYLAXIS
     Dosage: 81 MG DAILY
     Dates: start: 19980101
  2. TERAZOSIN HCL [Concomitant]
  3. HYDROCHLOROTHIAZID [Concomitant]
  4. LISINOPRIL [Concomitant]
  5. FLUNISOLIDE [Concomitant]
  6. ALBUTEROL [Concomitant]
  7. ENSURE PLUS [Concomitant]
  8. FERROUS SULFATE TAB [Concomitant]
  9. MULTI-VITAMIN [Concomitant]
  10. CALCIUM GLUCONATE [Concomitant]

REACTIONS (3)
  - ABDOMINAL PAIN [None]
  - ANAEMIA [None]
  - OCCULT BLOOD POSITIVE [None]
